FAERS Safety Report 20341843 (Version 1)
Quarter: 2022Q1

REPORT INFORMATION
  Report Type: Spontaneous
  Country: BR (occurrence: BR)
  Receive Date: 20220117
  Receipt Date: 20220117
  Transmission Date: 20220423
  Serious: Yes (Life-Threatening)
  Sender: FDA-Public Use
  Company Number: BR-NOVARTISPH-NVSC2021BR172449

PATIENT
  Age: 68 Year
  Sex: Female

DRUGS (1)
  1. TEGRETOL XR [Suspect]
     Active Substance: CARBAMAZEPINE
     Indication: Diabetes mellitus
     Dosage: 200 MG
     Route: 065
     Dates: start: 20210726, end: 20210726

REACTIONS (8)
  - Malaise [Unknown]
  - Feeling abnormal [Unknown]
  - Limb discomfort [Unknown]
  - Dizziness [Unknown]
  - Paraesthesia [Unknown]
  - Depression [Unknown]
  - Muscle spasms [Unknown]
  - Product use in unapproved indication [Unknown]

NARRATIVE: CASE EVENT DATE: 20210726
